FAERS Safety Report 11342852 (Version 1)
Quarter: 2015Q3

REPORT INFORMATION
  Report Type: Spontaneous
  Country: US (occurrence: US)
  Receive Date: 20150805
  Receipt Date: 20150805
  Transmission Date: 20151125
  Serious: Yes (Hospitalization)
  Sender: FDA-Public Use
  Company Number: US-BAXTER-2015BAX041813

PATIENT
  Sex: Male

DRUGS (2)
  1. DIANEAL LOW CALCIUM PERITONEAL DIALYSIS SOLUTION WITH DEXTROSE [Suspect]
     Active Substance: CALCIUM CHLORIDE\DEXTROSE\MAGNESIUM CHLORIDE\SODIUM CHLORIDE\SODIUM LACTATE
     Indication: CHRONIC KIDNEY DISEASE
     Route: 033
  2. GABAPENTIN. [Concomitant]
     Active Substance: GABAPENTIN
     Indication: NEUROPATHY PERIPHERAL
     Route: 065
     Dates: start: 20150728

REACTIONS (6)
  - Gastritis erosive [Recovering/Resolving]
  - Bedridden [Recovered/Resolved]
  - Blood calcium decreased [Recovering/Resolving]
  - Dehydration [Recovering/Resolving]
  - Restlessness [Not Recovered/Not Resolved]
  - Gallbladder disorder [Recovering/Resolving]

NARRATIVE: CASE EVENT DATE: 20150728
